FAERS Safety Report 19584869 (Version 1)
Quarter: 2021Q3

REPORT INFORMATION
  Report Type: Spontaneous
  Country: US (occurrence: US)
  Receive Date: 20210720
  Receipt Date: 20210720
  Transmission Date: 20211014
  Serious: No
  Sender: FDA-Public Use
  Company Number: US-PFIZER INC-2021696377

PATIENT
  Sex: Female
  Weight: 72.57 kg

DRUGS (1)
  1. RUXIENCE [Suspect]
     Active Substance: RITUXIMAB-PVVR
     Indication: NEOPLASM MALIGNANT
     Dosage: UNK
     Dates: start: 20210121

REACTIONS (2)
  - Pruritus [Unknown]
  - Gout [Unknown]

NARRATIVE: CASE EVENT DATE: 2021
